FAERS Safety Report 10878798 (Version 1)
Quarter: 2015Q1

REPORT INFORMATION
  Report Type: Spontaneous
  Country: US (occurrence: None)
  Receive Date: 20150224
  Receipt Date: 20150224
  Transmission Date: 20150721
  Serious: Yes (Other)
  Sender: FDA-Public Use
  Company Number: None

PATIENT
  Age: 65 Year
  Sex: Male
  Weight: 154.22 kg

DRUGS (1)
  1. ELIQUIS [Suspect]
     Active Substance: APIXABAN
     Indication: ATRIAL FIBRILLATION
     Dosage: 60/MONTH
     Route: 048
     Dates: start: 20140626, end: 20150213

REACTIONS (4)
  - Haemoptysis [None]
  - Muscle spasms [None]
  - Rectal haemorrhage [None]
  - Myalgia [None]

NARRATIVE: CASE EVENT DATE: 20150223
